FAERS Safety Report 21905725 (Version 2)
Quarter: 2023Q1

REPORT INFORMATION
  Report Type: Spontaneous
  Country: US (occurrence: US)
  Receive Date: 20230124
  Receipt Date: 20230127
  Transmission Date: 20230417
  Serious: No
  Sender: FDA-Public Use
  Company Number: US-Millicent Holdings Ltd.-MILL20230014

PATIENT
  Sex: Female

DRUGS (3)
  1. FEMRING [Suspect]
     Active Substance: ESTRADIOL ACETATE
     Indication: Product used for unknown indication
     Dosage: 0.05 MG/DAY
     Route: 067
     Dates: start: 202210
  2. FEMRING [Suspect]
     Active Substance: ESTRADIOL ACETATE
     Dosage: 0.05 MG/DAY
     Route: 067
     Dates: start: 2022
  3. ANTIBIOTIC GEL [Concomitant]
     Active Substance: BACITRACIN ZINC
     Indication: Bacterial infection
     Route: 067

REACTIONS (8)
  - Therapeutic product effect decreased [Recovered/Resolved]
  - Hot flush [Recovered/Resolved]
  - Insomnia [Recovered/Resolved]
  - Pollakiuria [Recovered/Resolved]
  - Irritability [Recovered/Resolved]
  - Product physical issue [Unknown]
  - Poor quality product administered [None]
  - Product temperature excursion issue [None]

NARRATIVE: CASE EVENT DATE: 20220101
